FAERS Safety Report 16655248 (Version 2)
Quarter: 2019Q3

REPORT INFORMATION
  Report Type: Report from Study
  Country: US (occurrence: US)
  Receive Date: 20190801
  Receipt Date: 20190806
  Transmission Date: 20191004
  Serious: No
  Sender: FDA-Public Use
  Company Number: PHEH2019US031874

PATIENT
  Sex: Female

DRUGS (6)
  1. IPRATROPIUM BROMIDE. [Suspect]
     Active Substance: IPRATROPIUM BROMIDE
     Indication: ASTHMA
     Dosage: UNK
     Route: 065
     Dates: start: 2017
  2. PREDNISONE. [Suspect]
     Active Substance: PREDNISONE
     Indication: ASTHMA
     Dosage: 20 MG, UNK
     Route: 065
     Dates: start: 2017
  3. PANTOPRAZOLE SODIUM. [Suspect]
     Active Substance: PANTOPRAZOLE SODIUM
     Indication: ASTHMA
     Dosage: 40 MG, UNK
     Route: 065
     Dates: start: 2017
  4. MONTELUKAST SODIUM. [Suspect]
     Active Substance: MONTELUKAST SODIUM
     Indication: ASTHMA
     Dosage: 10 MG, UNK
     Route: 065
     Dates: start: 2017
  5. FLUTICASONE. [Suspect]
     Active Substance: FLUTICASONE
     Indication: PRODUCT USED FOR UNKNOWN INDICATION
     Dosage: (NASAL PUMP)
     Route: 065
     Dates: start: 2001
  6. ALBUTEROL SULFATE. [Suspect]
     Active Substance: ALBUTEROL SULFATE
     Indication: ASTHMA
     Dosage: 3 MG, UNK
     Route: 065

REACTIONS (6)
  - Asthma [Recovered/Resolved]
  - Nausea [Unknown]
  - Drug ineffective for unapproved indication [Not Recovered/Not Resolved]
  - Nasal congestion [Unknown]
  - Drug ineffective [Not Recovered/Not Resolved]
  - Asthma [Unknown]
